FAERS Safety Report 8357585-2 (Version None)
Quarter: 2012Q2

REPORT INFORMATION
  Report Type: 
  Country: None (occurrence: None)
  Receive Date: 20120514
  Receipt Date: 20120510
  Transmission Date: 20120825
  Serious: Yes (Life-Threatening, Hospitalization)
  Sender: FDA-Public Use
  Company Number: CH-ABBOTT-12P-151-0934037-00

PATIENT
  Age: 46 Year
  Sex: Female

DRUGS (16)
  1. IMPORTAL [Concomitant]
     Indication: PRODUCT USED FOR UNKNOWN INDICATION
     Route: 048
  2. LANSOPRAZOLE [Concomitant]
     Indication: PRODUCT USED FOR UNKNOWN INDICATION
     Dosage: DAILY
     Dates: start: 20120420, end: 20120421
  3. PREZISTA [Interacting]
     Indication: HIV INFECTION
     Route: 048
     Dates: start: 20120425
  4. NEXIUM [Interacting]
     Indication: GASTROOESOPHAGEAL REFLUX DISEASE
     Route: 048
     Dates: start: 20120422
  5. NORVIR [Suspect]
     Indication: HIV INFECTION
     Route: 048
     Dates: start: 20120425
  6. MORPHINE SULFATE [Concomitant]
     Indication: PRODUCT USED FOR UNKNOWN INDICATION
     Dosage: 340 AM + 320 PM
     Route: 048
  7. ROHYPNOL [Concomitant]
     Indication: PRODUCT USED FOR UNKNOWN INDICATION
     Route: 048
  8. ALDACTONE [Concomitant]
     Indication: PRODUCT USED FOR UNKNOWN INDICATION
     Dosage: DAILY
  9. OXAZEPAM [Concomitant]
     Indication: PRODUCT USED FOR UNKNOWN INDICATION
     Route: 048
  10. NASONEX [Concomitant]
     Indication: PRODUCT USED FOR UNKNOWN INDICATION
     Route: 045
  11. ATOVAQUONE [Concomitant]
     Indication: PRODUCT USED FOR UNKNOWN INDICATION
     Route: 048
  12. NOROXIN [Concomitant]
     Indication: PRODUCT USED FOR UNKNOWN INDICATION
     Route: 048
  13. ESCITALOPRAM [Interacting]
     Indication: DEPRESSION
     Route: 048
     Dates: start: 20070101, end: 20120429
  14. FLUTICASONE PROPIONATE/SALMETEROL [Concomitant]
     Indication: PRODUCT USED FOR UNKNOWN INDICATION
     Route: 055
  15. TRUVADA [Concomitant]
     Indication: PRODUCT USED FOR UNKNOWN INDICATION
     Route: 048
     Dates: start: 20120425
  16. TORSEMIDE [Concomitant]
     Indication: PRODUCT USED FOR UNKNOWN INDICATION
     Route: 048

REACTIONS (20)
  - MYOCLONUS [None]
  - DECREASED APPETITE [None]
  - MYDRIASIS [None]
  - CONFUSIONAL STATE [None]
  - DRUG INTERACTION [None]
  - VERTIGO [None]
  - HEPATIC PAIN [None]
  - DRUG LEVEL INCREASED [None]
  - JAUNDICE [None]
  - ASTERIXIS [None]
  - NAUSEA [None]
  - FATIGUE [None]
  - CHILLS [None]
  - MUSCLE RIGIDITY [None]
  - HYPERTONIA [None]
  - SEROTONIN SYNDROME [None]
  - TREMOR [None]
  - PSYCHOMOTOR SKILLS IMPAIRED [None]
  - HYPERHIDROSIS [None]
  - VOMITING [None]
